FAERS Safety Report 6028991-6 (Version None)
Quarter: 2008Q4

REPORT INFORMATION
  Report Type: 
  Country: None (occurrence: None)
  Receive Date: 20081231
  Receipt Date: 20081216
  Transmission Date: 20090506
  Serious: Yes (Hospitalization)
  Sender: FDA-Public Use
  Company Number: 2008BI034028

PATIENT
  Age: 55 Year
  Sex: Male

DRUGS (7)
  1. ZEVALIN [Suspect]
     Indication: MANTLE CELL LYMPHOMA
     Dosage: 1X; IV
     Route: 042
     Dates: start: 20070504, end: 20070504
  2. RITUXIMAB [Concomitant]
  3. CYCLOPHOSPHAMIDE [Concomitant]
  4. DOXORUBICIN HCL [Concomitant]
  5. VINCRISTINE [Concomitant]
  6. METHOTREXATE [Concomitant]
  7. CYTARABINE [Concomitant]

REACTIONS (1)
  - RECTAL CANCER [None]
